FAERS Safety Report 8006556-4 (Version None)
Quarter: 2011Q4

REPORT INFORMATION
  Report Type: 
  Country: None (occurrence: None)
  Receive Date: 20111227
  Receipt Date: 20111215
  Transmission Date: 20120403
  Serious: Yes (Other)
  Sender: FDA-Public Use
  Company Number: US-BRISTOL-MYERS SQUIBB COMPANY-16309197

PATIENT
  Age: 37 Year
  Sex: Male
  Weight: 159 kg

DRUGS (6)
  1. ESCITALOPRAM [Concomitant]
     Indication: DEPRESSION
  2. TRIIODOTHYRONINE [Suspect]
     Indication: ANTIDEPRESSANT THERAPY
     Dosage: 50MCG
  3. TRAZODONE HCL [Concomitant]
     Indication: ANTIDEPRESSANT THERAPY
     Dosage: STOPPED
  4. BUPROPION [Concomitant]
     Indication: ANTIDEPRESSANT THERAPY
  5. VENLAFAXINE HCL [Suspect]
     Indication: ANTIDEPRESSANT THERAPY
     Dosage: OVER 12 WEEKS TO A DOSAGE OF 300MG/DAY,450MG
  6. METFORMIN HCL [Suspect]

REACTIONS (9)
  - HEART RATE INCREASED [None]
  - THYROID FUNCTION TEST ABNORMAL [None]
  - BLOOD THYROID STIMULATING HORMONE DECREASED [None]
  - BLOOD PRESSURE INCREASED [None]
  - THYROXINE DECREASED [None]
  - TREATMENT NONCOMPLIANCE [None]
  - SINUS TACHYCARDIA [None]
  - BLOOD GLUCOSE INCREASED [None]
  - DRUG DOSE OMISSION [None]
